FAERS Safety Report 5013836-3 (Version None)
Quarter: 2006Q2

REPORT INFORMATION
  Report Type: 
  Country: None (occurrence: None)
  Receive Date: 20060525
  Receipt Date: 20060512
  Transmission Date: 20061013
  Serious: Yes (Hospitalization)
  Sender: FDA-Public Use
  Company Number: 2006063769

PATIENT
  Age: 33 Year
  Sex: Female

DRUGS (2)
  1. DOSTINEX [Suspect]
     Indication: CRANIOPHARYNGIOMA
     Dosage: UNK (0.5 MG, EVERY OTHER DAY), ORAL
     Route: 048
     Dates: start: 20000101, end: 20050607
  2. OMEPRAZOLE [Concomitant]

REACTIONS (8)
  - ADRENOCORTICAL INSUFFICIENCY ACUTE [None]
  - DILATATION ATRIAL [None]
  - FATIGUE [None]
  - HEPATOMEGALY [None]
  - JOINT SWELLING [None]
  - PERICARDIAL FIBROSIS [None]
  - PERICARDITIS [None]
  - VENTRICULAR DYSFUNCTION [None]
